FAERS Safety Report 25987130 (Version 1)
Quarter: 2025Q4

REPORT INFORMATION
  Report Type: Spontaneous
  Country: JP (occurrence: JP)
  Receive Date: 20251103
  Receipt Date: 20251103
  Transmission Date: 20260117
  Serious: Yes (Other)
  Sender: MERCK SHARP & DOHME LLC
  Company Number: JP-009507513-2263376

PATIENT
  Age: 74 Year
  Sex: Male

DRUGS (2)
  1. KEYTRUDA [Suspect]
     Active Substance: PEMBROLIZUMAB
     Indication: Ureteric cancer
     Dosage: NUMBER OF COURSES: 5. DOSAGE REDUCED: EV 1.0MG/M2, FROM 1ST DOSE
  2. ENFORTUMAB VEDOTIN [Suspect]
     Active Substance: ENFORTUMAB VEDOTIN
     Indication: Ureteric cancer
     Dosage: FROM CYCLE 1

REACTIONS (4)
  - Interstitial lung disease [Unknown]
  - Therapy partial responder [Unknown]
  - Hypothyroidism [Unknown]
  - Neuropathy peripheral [Unknown]
